FAERS Safety Report 10262365 (Version 1)
Quarter: 2014Q2

REPORT INFORMATION
  Report Type: Spontaneous
  Country: GB (occurrence: GB)
  Receive Date: 20140626
  Receipt Date: 20140626
  Transmission Date: 20141212
  Serious: Yes (Other)
  Sender: FDA-Public Use
  Company Number: GB-PFIZER INC-2014174263

PATIENT
  Age: 48 Year
  Sex: Female
  Weight: 100 kg

DRUGS (7)
  1. AMLODIPINE BESILATE [Suspect]
     Dosage: 5 MG, UNK
     Dates: end: 20140602
  2. AMLODIPINE BESILATE [Suspect]
     Dates: start: 20140603, end: 20140613
  3. MELOXICAM [Concomitant]
     Dosage: UNK
  4. INDAPAMIDE [Concomitant]
     Dosage: UNK
  5. LORATADINE [Concomitant]
     Dosage: 10 MG, 3X/DAY
     Dates: start: 20140412
  6. PARACETAMOL [Concomitant]
  7. RANITIDINE [Concomitant]
     Dosage: 150 MG, 2X/DAY

REACTIONS (2)
  - Oedema peripheral [Recovered/Resolved]
  - Pain in extremity [Recovered/Resolved]
